FAERS Safety Report 6782490-2 (Version None)
Quarter: 2010Q2

REPORT INFORMATION
  Report Type: 
  Country: None (occurrence: None)
  Receive Date: 20100616
  Receipt Date: 20100605
  Transmission Date: 20101027
  Serious: Yes (Other)
  Sender: FDA-Public Use
  Company Number: CRC-10-028

PATIENT

DRUGS (8)
  1. VECURONIUM BROMIDE [Suspect]
     Indication: ENDOTRACHEAL INTUBATION
     Dosage: SEE B.5
     Dates: start: 20100208, end: 20100209
  2. VECURONIUM BROMIDE [Suspect]
     Indication: SURGERY
     Dosage: SEE B.5
     Dates: start: 20100208, end: 20100209
  3. VERSED [Concomitant]
  4. FENTANYL [Concomitant]
  5. LIDOCAINE [Concomitant]
  6. PROPOFOL [Concomitant]
  7. ETONIDATE [Concomitant]
  8. ISOFLURANE [Concomitant]

REACTIONS (2)
  - DRUG INEFFECTIVE [None]
  - PRODUCT MEASURED POTENCY ISSUE [None]
